FAERS Safety Report 13903059 (Version 1)
Quarter: 2017Q3

REPORT INFORMATION
  Report Type: Spontaneous
  Country: BR (occurrence: BR)
  Receive Date: 20170824
  Receipt Date: 20170824
  Transmission Date: 20171127
  Serious: Yes (Life-Threatening, Other)
  Sender: FDA-Public Use
  Company Number: PHHY2017BR123335

PATIENT
  Sex: Female

DRUGS (1)
  1. DESOGESTREL [Suspect]
     Active Substance: DESOGESTREL
     Indication: POSTPARTUM HAEMORRHAGE
     Dosage: UNK
     Route: 065
     Dates: start: 2014

REACTIONS (7)
  - Irritability [Unknown]
  - Dyspnoea [Unknown]
  - Anxiety [Unknown]
  - Affect lability [Unknown]
  - Feeling abnormal [Unknown]
  - Depression suicidal [Unknown]
  - Mood altered [Unknown]
